FAERS Safety Report 8954388 (Version 2)
Quarter: 2012Q4

REPORT INFORMATION
  Report Type: 
  Country: FR (occurrence: FR)
  Receive Date: 20121207
  Receipt Date: 20121221
  Transmission Date: 20130627
  Serious: Yes (Hospitalization, Other)
  Sender: FDA-Public Use
  Company Number: FR-ABBOTT-12P-056-0993272-00

PATIENT
  Age: 42 None
  Sex: Female

DRUGS (12)
  1. NORVIR [Suspect]
     Indication: HIV INFECTION CDC CATEGORY C3
     Route: 048
     Dates: start: 20110308, end: 20110315
  2. NORVIR [Suspect]
     Route: 048
     Dates: start: 20110328, end: 20120626
  3. COLCHICINE [Suspect]
     Indication: PRODUCT USED FOR UNKNOWN INDICATION
     Route: 048
     Dates: start: 201204
  4. COLCHICINE [Suspect]
  5. TELZIR [Suspect]
     Indication: HIV INFECTION CDC GROUP III
     Route: 048
     Dates: start: 20110328, end: 20120626
  6. VOLIBRIS [Suspect]
     Indication: PULMONARY ARTERIAL HYPERTENSION
     Dosage: 5 mg daily
     Route: 048
     Dates: start: 20120101, end: 20120714
  7. SEROPRAM B [Concomitant]
     Indication: PRODUCT USED FOR UNKNOWN INDICATION
     Route: 048
  8. XANAX [Concomitant]
     Indication: PRODUCT USED FOR UNKNOWN INDICATION
     Route: 048
  9. TRUVADA [Concomitant]
     Indication: HIV INFECTION
     Dates: start: 20060823, end: 20120710
  10. STILNOX [Concomitant]
     Indication: PRODUCT USED FOR UNKNOWN INDICATION
     Route: 048
  11. FLUINDIONE [Concomitant]
     Indication: PRODUCT USED FOR UNKNOWN INDICATION
     Route: 048
  12. NEVIRAPINE [Concomitant]
     Indication: PRODUCT USED FOR UNKNOWN INDICATION
     Route: 048
     Dates: start: 20120626, end: 20120710

REACTIONS (11)
  - Pulmonary arterial hypertension [Unknown]
  - Anaemia [Recovered/Resolved with Sequelae]
  - Dysgeusia [Unknown]
  - Nausea [Unknown]
  - Haemolysis [Unknown]
  - Malaise [Unknown]
  - Dilatation ventricular [Unknown]
  - Pericardial effusion [Unknown]
  - Ventricular hypertrophy [Unknown]
  - Intervertebral disc protrusion [Unknown]
  - Anaemia [Unknown]
